FAERS Safety Report 7351429-3 (Version None)
Quarter: 2011Q1

REPORT INFORMATION
  Report Type: 
  Country: None (occurrence: None)
  Receive Date: 20110314
  Receipt Date: 20110310
  Transmission Date: 20110831
  Serious: Yes (Hospitalization, Disabling)
  Sender: FDA-Public Use
  Company Number: AU-ABBOTT-11P-008-0710534-00

PATIENT
  Age: 45 Year
  Sex: Male

DRUGS (2)
  1. DIAZEPAM [Suspect]
     Indication: INSOMNIA
  2. VALPROATE SODIUM [Suspect]
     Indication: BIPOLAR DISORDER

REACTIONS (4)
  - ENCEPHALOPATHY [None]
  - BRAIN OEDEMA [None]
  - CEREBRAL INFARCTION [None]
  - INTENTIONAL OVERDOSE [None]
